FAERS Safety Report 10440168 (Version 2)
Quarter: 2014Q3

REPORT INFORMATION
  Report Type: Spontaneous
  Country: FR (occurrence: FR)
  Receive Date: 20140908
  Receipt Date: 20140922
  Transmission Date: 20150326
  Serious: Yes (Hospitalization)
  Sender: FDA-Public Use
  Company Number: FR-ELI_LILLY_AND_COMPANY-FR201409002001

PATIENT
  Age: 45 Year
  Sex: Female

DRUGS (2)
  1. LITHIUM [Concomitant]
     Active Substance: LITHIUM CARBONATE
  2. ZYPADHERA [Suspect]
     Active Substance: OLANZAPINE PAMOATE
     Indication: SCHIZOPHRENIA
     Dosage: 405 MG, MONTHLY (1/M)
     Route: 030
     Dates: start: 2012

REACTIONS (4)
  - Meningorrhagia [Recovered/Resolved]
  - Nasopharyngitis [Recovered/Resolved]
  - Hyperthermia [Recovered/Resolved]
  - Loss of consciousness [Recovered/Resolved]

NARRATIVE: CASE EVENT DATE: 20140819
